FAERS Safety Report 24411839 (Version 1)
Quarter: 2024Q4

REPORT INFORMATION
  Report Type: Spontaneous
  Country: US (occurrence: US)
  Receive Date: 20241008
  Receipt Date: 20241008
  Transmission Date: 20250114
  Serious: Yes (Hospitalization)
  Sender: MYLAN
  Company Number: US-MYLANLABS-2024M1090552

PATIENT
  Age: 50 Year
  Sex: Male

DRUGS (3)
  1. ADENOSINE [Suspect]
     Active Substance: ADENOSINE
     Indication: Supraventricular tachycardia
     Dosage: 6 MILLIGRAM {6MG IVX1 [SIC]}
     Route: 042
  2. METOPROLOL [Suspect]
     Active Substance: METOPROLOL
     Indication: Supraventricular tachycardia
     Dosage: 5 MILLIGRAM {5MG IVX3 [SIC]}
     Route: 042
  3. ESMOLOL [Suspect]
     Active Substance: ESMOLOL HYDROCHLORIDE
     Indication: Atrial flutter
     Dosage: UNK (INFUSION)
     Route: 065

REACTIONS (1)
  - Drug ineffective [Unknown]
